FAERS Safety Report 10239087 (Version 1)
Quarter: 2014Q2

REPORT INFORMATION
  Report Type: Spontaneous
  Country: CN (occurrence: CN)
  Receive Date: 20140616
  Receipt Date: 20140616
  Transmission Date: 20141212
  Serious: Yes (Other)
  Sender: FDA-Public Use
  Company Number: CN-PFIZER INC-2014161809

PATIENT
  Age: 75 Year
  Sex: Female
  Weight: 68 kg

DRUGS (4)
  1. PHARMORUBICIN [Suspect]
     Indication: PERIPHERAL T-CELL LYMPHOMA UNSPECIFIED
     Dosage: 120 MG, 1X/DAY
     Route: 041
     Dates: start: 20131218, end: 20131218
  2. SOLU-MEDROL [Suspect]
     Indication: PERIPHERAL T-CELL LYMPHOMA UNSPECIFIED
     Dosage: 120 MG, 1X/DAY
     Route: 041
     Dates: start: 20131218, end: 20131222
  3. ENDOXAN [Suspect]
     Indication: PERIPHERAL T-CELL LYMPHOMA UNSPECIFIED
     Dosage: 0.8 G, 1X/DAY
     Route: 041
     Dates: start: 20131218, end: 20131218
  4. VINCRISTINE SULFATE [Suspect]
     Indication: PERIPHERAL T-CELL LYMPHOMA UNSPECIFIED
     Dosage: 2 MG, 1X/DAY
     Route: 041
     Dates: start: 20131218, end: 20131218

REACTIONS (1)
  - Bone marrow failure [Recovering/Resolving]
